FAERS Safety Report 9791450 (Version 2)
Quarter: 2014Q1

REPORT INFORMATION
  Report Type: Report from Study
  Country: BR (occurrence: BR)
  Receive Date: 20140101
  Receipt Date: 20140127
  Transmission Date: 20141002
  Serious: Yes (Other)
  Sender: FDA-Public Use
  Company Number: PHHY2013BR153536

PATIENT
  Age: 69 Year
  Sex: Male
  Weight: 87 kg

DRUGS (3)
  1. RASILEZ [Suspect]
     Indication: HYPERTENSION
     Dosage: 150 MG, QD (IN MORNING)
     Route: 048
  2. RASILEZ [Suspect]
     Dosage: 300 MG, UNK
     Dates: start: 20131219
  3. SELOZOK [Concomitant]
     Indication: HYPERTENSION
     Dosage: 1 DF, (25 MG) DAILY
     Route: 048

REACTIONS (2)
  - Coronary artery stenosis [Recovered/Resolved]
  - Appendicitis [Recovered/Resolved]
